FAERS Safety Report 26114758 (Version 1)
Quarter: 2025Q4

REPORT INFORMATION
  Report Type: Report from Study
  Country: KR (occurrence: KR)
  Receive Date: 20251202
  Receipt Date: 20251202
  Transmission Date: 20260117
  Serious: Yes (Other)
  Sender: ABBVIE
  Company Number: KR-ABBVIE-5378092

PATIENT
  Age: 69 Year
  Sex: Female
  Weight: 49 kg

DRUGS (31)
  1. VENCLEXTA [Suspect]
     Active Substance: VENETOCLAX
     Indication: Acute myeloid leukaemia
     Route: 048
     Dates: start: 20230719, end: 20230719
  2. VENCLEXTA [Suspect]
     Active Substance: VENETOCLAX
     Indication: Acute myeloid leukaemia
     Route: 048
     Dates: start: 20230720, end: 20230720
  3. VENCLEXTA [Suspect]
     Active Substance: VENETOCLAX
     Indication: Acute myeloid leukaemia
     Route: 048
     Dates: start: 20230721, end: 20230721
  4. VENCLEXTA [Suspect]
     Active Substance: VENETOCLAX
     Indication: Acute myeloid leukaemia
     Route: 048
     Dates: start: 20230722, end: 20230818
  5. Liv gamma sn [Concomitant]
     Indication: Infection prophylaxis
     Route: 042
     Dates: start: 20230810, end: 20230811
  6. Codeine guju [Concomitant]
     Indication: Cough
     Dosage: TIME INTERVAL: 0.33333333 DAYS
     Route: 048
     Dates: start: 20230720, end: 20230803
  7. VACRAX [Concomitant]
     Indication: Infection prophylaxis
     Route: 048
     Dates: start: 20230719
  8. MAGNESIUM HYDROXIDE [Concomitant]
     Active Substance: MAGNESIUM HYDROXIDE
     Indication: Constipation
     Dosage: TIME INTERVAL: 0.33333333 DAYS
     Route: 048
     Dates: start: 20230818, end: 20230819
  9. LEVOFLOXACIN [Concomitant]
     Active Substance: LEVOFLOXACIN
     Indication: Infection prophylaxis
     Route: 048
     Dates: start: 20230719, end: 20230720
  10. THEOBROMINE [Concomitant]
     Active Substance: THEOBROMINE
     Indication: Cough
     Route: 048
     Dates: start: 20230717
  11. LYRICA [Concomitant]
     Active Substance: PREGABALIN
     Indication: Sciatica
     Route: 048
     Dates: start: 20230818
  12. MAXIPIME [Concomitant]
     Active Substance: CEFEPIME HYDROCHLORIDE
     Indication: Pyrexia
     Dosage: TIME INTERVAL: 0.33333333 DAYS
     Route: 042
     Dates: start: 20230720, end: 20230807
  13. ACETYLCYSTEINE [Concomitant]
     Active Substance: ACETYLCYSTEINE
     Indication: Cough
     Route: 042
     Dates: start: 20230716, end: 20230807
  14. FREAMINE III NOS [Concomitant]
     Active Substance: AMINO ACIDS
     Indication: Decreased appetite
     Route: 042
     Dates: start: 20230720
  15. ALLPAIN [Concomitant]
     Indication: Sciatica
     Dosage: PRN
     Route: 042
     Dates: start: 20230806, end: 20230818
  16. PROPACETAMOL HYDROCHLORIDE [Concomitant]
     Active Substance: PROPACETAMOL HYDROCHLORIDE
     Indication: Pyrexia
     Route: 048
     Dates: start: 20230717, end: 20230726
  17. VANCOMYCIN HYDROCHLORIDE [Concomitant]
     Active Substance: VANCOMYCIN HYDROCHLORIDE
     Indication: Pyrexia
     Route: 042
     Dates: start: 20230724, end: 20230804
  18. NOXAFIL [Concomitant]
     Active Substance: POSACONAZOLE
     Indication: Infection prophylaxis
     Route: 048
     Dates: start: 20230719
  19. TYLICOL [Concomitant]
     Indication: Pyrexia
     Route: 042
     Dates: start: 20230720, end: 20230727
  20. MEGACE F [Concomitant]
     Indication: Decreased appetite
     Route: 048
     Dates: start: 20230724
  21. GANAKHAN [Concomitant]
     Indication: Gastrointestinal disorder prophylaxis
     Route: 048
     Dates: start: 20230717
  22. NALOXONE HYDROCHLORIDE\OXYCODONE HYDROCHLORIDE [Concomitant]
     Active Substance: NALOXONE HYDROCHLORIDE\OXYCODONE HYDROCHLORIDE
     Indication: Sciatica
     Route: 048
     Dates: start: 20230809, end: 20230816
  23. Daewoong meropenem [Concomitant]
     Indication: Bacillus bacteraemia
     Dosage: TIME INTERVAL: 0.33333333 DAYS
     Route: 042
     Dates: start: 20230810
  24. LEVOFLOXACIN [Concomitant]
     Active Substance: LEVOFLOXACIN
     Indication: Pyrexia
     Route: 042
     Dates: start: 20230721, end: 20230807
  25. TRESTAN [Concomitant]
     Indication: Decreased appetite
     Route: 048
     Dates: start: 20230721, end: 20230723
  26. ALLOPURINOL [Concomitant]
     Active Substance: ALLOPURINOL
     Indication: Prophylaxis
     Route: 048
     Dates: start: 20230718, end: 20230816
  27. SULFAMETHOXAZOLE\TRIMETHOPRIM [Concomitant]
     Active Substance: SULFAMETHOXAZOLE\TRIMETHOPRIM
     Indication: Infection prophylaxis
     Route: 048
     Dates: start: 20230719
  28. ERDOSTEINE [Concomitant]
     Active Substance: ERDOSTEINE
     Indication: Cough
     Dosage: TIME INTERVAL: 0.33333333 DAYS
     Route: 048
     Dates: start: 20230717
  29. REBAMIPIDE [Concomitant]
     Active Substance: REBAMIPIDE
     Indication: Gastrointestinal disorder prophylaxis
     Route: 048
     Dates: start: 20230717
  30. DEBIKIN [Concomitant]
     Indication: Acute myeloid leukaemia
     Route: 042
     Dates: start: 20230719, end: 20230723
  31. PRUCALOPRIDE SUCCINATE [Concomitant]
     Active Substance: PRUCALOPRIDE SUCCINATE
     Indication: Constipation
     Route: 048
     Dates: start: 20230818, end: 20230819

REACTIONS (1)
  - Acute myeloid leukaemia [Recovered/Resolved]

NARRATIVE: CASE EVENT DATE: 20230821
